FAERS Safety Report 5532428-0 (Version None)
Quarter: 2007Q4

REPORT INFORMATION
  Report Type: 
  Country: None (occurrence: None)
  Receive Date: 20071203
  Receipt Date: 20071121
  Transmission Date: 20080405
  Serious: Yes (Other)
  Sender: FDA-Public Use
  Company Number: US-PFIZER INC-2007076192

PATIENT
  Sex: Female
  Weight: 62.6 kg

DRUGS (3)
  1. CHANTIX [Suspect]
     Indication: SMOKING CESSATION THERAPY
     Dates: start: 20070101, end: 20070101
  2. HYDROCHLOROTHIAZIDE [Concomitant]
  3. NICODERM [Concomitant]
     Indication: EX-SMOKER
     Dates: start: 20070101, end: 20070101

REACTIONS (4)
  - AGGRESSION [None]
  - DEPRESSION [None]
  - HOSTILITY [None]
  - OESOPHAGEAL SPASM [None]
